FAERS Safety Report 26131750 (Version 2)
Quarter: 2025Q4

REPORT INFORMATION
  Report Type: Report from Study
  Country: US (occurrence: US)
  Receive Date: 20251208
  Receipt Date: 20251212
  Transmission Date: 20260119
  Serious: Yes (Other)
  Sender: ALEXION PHARMACEUTICALS
  Company Number: US-AstraZeneca-CH-01008772A

PATIENT
  Sex: Female

DRUGS (1)
  1. RAVULIZUMAB [Suspect]
     Active Substance: RAVULIZUMAB
     Dosage: UNK
     Route: 065

REACTIONS (5)
  - Respiratory disorder [Unknown]
  - Asthma [Unknown]
  - Smoke sensitivity [Unknown]
  - Cough [Unknown]
  - Fatigue [Unknown]
